FAERS Safety Report 23783397 (Version 1)
Quarter: 2024Q2

REPORT INFORMATION
  Report Type: Spontaneous
  Country: US (occurrence: US)
  Receive Date: 20240425
  Receipt Date: 20240425
  Transmission Date: 20240715
  Serious: No
  Sender: FDA-Public Use
  Company Number: US-EPICPHARMA-US-2024EPCSPO00389

PATIENT
  Age: 64 Year
  Sex: Male
  Weight: 147 kg

DRUGS (1)
  1. URSODIOL [Suspect]
     Active Substance: URSODIOL
     Indication: Gallbladder disorder
     Route: 048

REACTIONS (1)
  - Tendonitis [Unknown]
